FAERS Safety Report 4364745-4 (Version None)
Quarter: 2004Q2

REPORT INFORMATION
  Report Type: 
  Country: None (occurrence: None)
  Receive Date: 20040521
  Receipt Date: 20040503
  Transmission Date: 20050107
  Serious: Yes (Hospitalization, Other)
  Sender: FDA-Public Use
  Company Number: US_0404101955

PATIENT
  Age: 70 Year
  Sex: Female
  Weight: 81 kg

DRUGS (6)
  1. EVISTA [Suspect]
     Indication: OSTEOPOROSIS
     Dates: start: 20011217, end: 20040318
  2. VITAMIN D [Concomitant]
  3. FOSAMAX [Concomitant]
  4. DEPO-MEDROL [Concomitant]
  5. DECADRON [Concomitant]
  6. MEDROL DOSEPAK (METHYLPREDNISOLONE) [Concomitant]

REACTIONS (9)
  - BONE DENSITY DECREASED [None]
  - HIP FRACTURE [None]
  - HUMERUS FRACTURE [None]
  - INJURY [None]
  - MUSCLE CRAMP [None]
  - RIB FRACTURE [None]
  - ROAD TRAFFIC ACCIDENT [None]
  - SPINAL FRACTURE [None]
  - WRIST FRACTURE [None]
